FAERS Safety Report 5842779-8 (Version None)
Quarter: 2008Q3

REPORT INFORMATION
  Report Type: 
  Country: None (occurrence: None)
  Receive Date: 20080811
  Receipt Date: 20080804
  Transmission Date: 20090109
  Serious: Yes (Hospitalization)
  Sender: FDA-Public Use
  Company Number: 2008BI019913

PATIENT
  Age: 55 Year
  Sex: Male

DRUGS (2)
  1. AVONEX [Suspect]
     Indication: MULTIPLE SCLEROSIS
     Dosage: 30 UG,QW,IM; 30 UG;QW;IM
     Route: 030
     Dates: start: 19991001, end: 20030825
  2. AVONEX [Suspect]
     Indication: MULTIPLE SCLEROSIS
     Dosage: 30 UG,QW,IM; 30 UG;QW;IM
     Route: 030
     Dates: start: 20030905

REACTIONS (1)
  - FEMUR FRACTURE [None]
